FAERS Safety Report 5310818-9 (Version None)
Quarter: 2007Q2

REPORT INFORMATION
  Report Type: 
  Country: None (occurrence: None)
  Receive Date: 20070428
  Receipt Date: 20070418
  Transmission Date: 20071010
  Serious: Yes (Death, Life-Threatening, Other)
  Sender: FDA-Public Use
  Company Number: DE-PFIZER INC-2006154192

PATIENT
  Sex: Female
  Weight: 80 kg

DRUGS (14)
  1. ZYVOX [Suspect]
     Indication: ENTEROCOCCAL INFECTION
     Dosage: DAILY DOSE:1200MG-FREQ:FREQUENCY: BID
     Route: 042
     Dates: start: 20061120, end: 20061127
  2. COTRIM [Suspect]
     Dosage: TEXT:12 AMPULES
     Route: 048
     Dates: start: 20061113, end: 20061128
  3. FLUCONAZOLE [Concomitant]
     Route: 042
  4. MERONEM [Concomitant]
     Route: 042
  5. CIPROFLOXACIN [Concomitant]
     Route: 048
  6. INSUMAN RAPID [Concomitant]
  7. DURAGESIC-100 [Concomitant]
  8. TORSEMIDE [Concomitant]
  9. PANTOZOL [Concomitant]
  10. LIPOIC ACID [Concomitant]
  11. METOPROLOL SUCCINATE [Concomitant]
  12. AMITRIPTYLINE HCL [Concomitant]
  13. NOVODIGAL [Concomitant]
  14. HEPARIN [Concomitant]
     Route: 058

REACTIONS (4)
  - PLEURAL EFFUSION [None]
  - RENAL FAILURE ACUTE [None]
  - RESPIRATORY FAILURE [None]
  - THROMBOCYTOPENIA [None]
